FAERS Safety Report 8133642-0 (Version None)
Quarter: 2012Q1

REPORT INFORMATION
  Report Type: 
  Country: None (occurrence: None)
  Receive Date: 20120213
  Receipt Date: 20120202
  Transmission Date: 20120608
  Serious: Yes (Other)
  Sender: FDA-Public Use
  Company Number: GB-BAXTER-2012BH003440

PATIENT
  Sex: Female

DRUGS (10)
  1. HUMIRA [Suspect]
     Indication: IN VITRO FERTILISATION
     Route: 065
  2. ENOXAPARIN SODIUM [Suspect]
     Indication: PROPHYLAXIS
     Route: 065
  3. IMMUNE GLOBULIN INTRAVENOUS (HUMAN) [Suspect]
     Indication: IN VITRO FERTILISATION
     Route: 042
  4. DEXAMETHASONE [Suspect]
     Indication: NATURAL KILLER CELL COUNT INCREASED
     Route: 065
  5. IMMUNE GLOBULIN INTRAVENOUS (HUMAN) [Suspect]
     Indication: OFF LABEL USE
     Route: 042
  6. PROGESTERONE [Suspect]
     Indication: PRODUCT USED FOR UNKNOWN INDICATION
     Route: 065
  7. DEXAMETHASONE [Suspect]
     Indication: ANTINUCLEAR ANTIBODY POSITIVE
     Route: 065
  8. ASPIRIN [Suspect]
     Indication: PRODUCT USED FOR UNKNOWN INDICATION
     Route: 065
  9. IMMUNE GLOBULIN INTRAVENOUS (HUMAN) [Suspect]
     Route: 042
  10. IMMUNE GLOBULIN INTRAVENOUS (HUMAN) [Suspect]
     Route: 042

REACTIONS (2)
  - ABORTION INDUCED [None]
  - MATERNAL EXPOSURE DURING PREGNANCY [None]
